FAERS Safety Report 6324572-5 (Version None)
Quarter: 2009Q3

REPORT INFORMATION
  Report Type: 
  Country: None (occurrence: None)
  Receive Date: 20090824
  Receipt Date: 20090424
  Transmission Date: 20100115
  Serious: No
  Sender: FDA-Public Use
  Company Number: US-ABBOTT-09P-163-0570202-00

PATIENT
  Sex: Male

DRUGS (12)
  1. NIASPAN [Suspect]
     Indication: HIGH DENSITY LIPOPROTEIN DECREASED
     Route: 048
     Dates: start: 20071022, end: 20071118
  2. NIASPAN [Suspect]
     Route: 048
     Dates: start: 20071119, end: 20071216
  3. NIASPAN [Suspect]
     Route: 048
     Dates: start: 20071217, end: 20080501
  4. NIASPAN [Suspect]
     Route: 048
     Dates: start: 20090101
  5. NIASPAN [Suspect]
     Route: 048
  6. NIASPAN [Suspect]
     Route: 048
  7. NIASPAN [Suspect]
     Route: 048
  8. NIACIN [Suspect]
     Indication: HIGH DENSITY LIPOPROTEIN DECREASED
     Route: 048
     Dates: start: 20080501, end: 20081029
  9. SIMVASTATIN [Suspect]
     Indication: DRUG USE FOR UNKNOWN INDICATION
     Route: 048
     Dates: start: 20071001, end: 20081008
  10. SIMVASTATIN [Suspect]
     Dates: start: 20081212, end: 20090108
  11. SIMVASTATIN [Suspect]
     Route: 048
     Dates: start: 20090325
  12. ANDROGEL [Concomitant]
     Indication: DRUG USE FOR UNKNOWN INDICATION

REACTIONS (2)
  - PLATELET COUNT DECREASED [None]
  - WHITE BLOOD CELL COUNT DECREASED [None]
